FAERS Safety Report 4471579-9 (Version None)
Quarter: 2004Q4

REPORT INFORMATION
  Report Type: 
  Country: None (occurrence: None)
  Receive Date: 20041012
  Receipt Date: 20040405
  Transmission Date: 20050328
  Serious: Yes (Hospitalization, Disabling, Other)
  Sender: FDA-Public Use
  Company Number: GB-GLAXOSMITHKLINE-B0329727A

PATIENT
  Age: 45 Year
  Sex: Female
  Weight: 81 kg

DRUGS (2)
  1. PAROXETINE HYDROCHLORIDE [Suspect]
  2. DIAZEPAM [Concomitant]
     Indication: AGITATION
     Route: 048
     Dates: start: 19990101

REACTIONS (4)
  - CEREBROVASCULAR ACCIDENT [None]
  - MIGRAINE WITHOUT AURA [None]
  - PARKINSON'S DISEASE [None]
  - TRANSIENT ISCHAEMIC ATTACK [None]
